FAERS Safety Report 7013255-4 (Version None)
Quarter: 2010Q3

REPORT INFORMATION
  Report Type: 
  Country: None (occurrence: None)
  Receive Date: 20100924
  Receipt Date: 20100915
  Transmission Date: 20110219
  Serious: Yes (Hospitalization)
  Sender: FDA-Public Use
  Company Number: FR-PERRIGO-10FR013032

PATIENT
  Age: 19 Year
  Sex: Female

DRUGS (6)
  1. PSEUDOEPHEDRINE HYDROCHLORIDE  12 HOUR 120 MG 054 [Suspect]
     Indication: NASOPHARYNGITIS
     Dosage: UNK, SINGLE
     Route: 048
  2. PREDNISONE TAB [Suspect]
     Indication: LEUKOCYTOCLASTIC VASCULITIS
     Dosage: 1 MG/KG, UNK
     Route: 048
  3. PREDNISONE TAB [Suspect]
     Dosage: 1 MG/KG, QD
  4. HYDROXYCHLOROQUINE [Concomitant]
     Indication: LEUKOCYTOCLASTIC VASCULITIS
     Route: 065
  5. ENALAPRIL [Concomitant]
     Indication: LEUKOCYTOCLASTIC VASCULITIS
     Route: 065
  6. LOSARTAN POTASSIUM [Concomitant]
     Indication: LEUKOCYTOCLASTIC VASCULITIS
     Route: 065

REACTIONS (9)
  - BLOOD CREATININE INCREASED [None]
  - BLOOD PRESSURE INCREASED [None]
  - ENCEPHALOPATHY [None]
  - HEADACHE [None]
  - HYPOALBUMINAEMIA [None]
  - LEUKOCYTOSIS [None]
  - NORMOCHROMIC NORMOCYTIC ANAEMIA [None]
  - PROTEINURIA [None]
  - VOMITING [None]
